FAERS Safety Report 13641001 (Version 1)
Quarter: 2017Q2

REPORT INFORMATION
  Report Type: Spontaneous
  Country: US (occurrence: US)
  Receive Date: 20170612
  Receipt Date: 20170612
  Transmission Date: 20170830
  Serious: No
  Sender: FDA-Public Use
  Company Number: US-ASTRAZENECA-2017SE60738

PATIENT
  Age: 23831 Day
  Sex: Male
  Weight: 101.2 kg

DRUGS (2)
  1. TRULICITY [Concomitant]
     Active Substance: DULAGLUTIDE
     Indication: LATENT AUTOIMMUNE DIABETES IN ADULTS
     Dosage: 34.0IU UNKNOWN
     Route: 058
     Dates: start: 201705
  2. FARXIGA [Suspect]
     Active Substance: DAPAGLIFLOZIN PROPANEDIOL
     Indication: LATENT AUTOIMMUNE DIABETES IN ADULTS
     Route: 048
     Dates: start: 201705

REACTIONS (7)
  - Muscle spasms [Recovered/Resolved]
  - Loss of consciousness [Unknown]
  - Product use issue [Unknown]
  - Fall [Unknown]
  - Off label use [Unknown]
  - Colour blindness [Recovering/Resolving]
  - Visual impairment [Recovering/Resolving]

NARRATIVE: CASE EVENT DATE: 20170605
